FAERS Safety Report 8212526-3 (Version None)
Quarter: 2012Q1

REPORT INFORMATION
  Report Type: 
  Country: None (occurrence: None)
  Receive Date: 20120315
  Receipt Date: 20120313
  Transmission Date: 20120608
  Serious: Yes (Life-Threatening, Hospitalization)
  Sender: FDA-Public Use
  Company Number: DE-GLAXOSMITHKLINE-D0074090A

PATIENT
  Sex: Male

DRUGS (1)
  1. DUTASTERIDE/TAMSULOSIN HYDROCHLORIDE [Suspect]
     Route: 065
     Dates: start: 20111130, end: 20111202

REACTIONS (4)
  - NAUSEA [None]
  - CIRCULATORY COLLAPSE [None]
  - ATRIAL FIBRILLATION [None]
  - HYPERHIDROSIS [None]
